FAERS Safety Report 8452238-4 (Version None)
Quarter: 2012Q2

REPORT INFORMATION
  Report Type: 
  Country: None (occurrence: None)
  Receive Date: 20120620
  Receipt Date: 20120503
  Transmission Date: 20120825
  Serious: No
  Sender: FDA-Public Use
  Company Number: US-VERTEX PHARMACEUTICALS INC.-AE-2012-004822

PATIENT
  Sex: Female
  Weight: 73.548 kg

DRUGS (4)
  1. INCIVEK [Suspect]
     Indication: HEPATITIS C
     Route: 048
     Dates: start: 20120330
  2. UNSPECIFIED BP MEDICATIONS [Concomitant]
  3. RIBAVIRIN [Concomitant]
     Indication: HEPATITIS C
     Route: 048
     Dates: start: 20120330
  4. PEGASYS [Concomitant]
     Indication: HEPATITIS C
     Route: 058
     Dates: start: 20120330

REACTIONS (12)
  - ANAEMIA [None]
  - HAEMORRHOIDS [None]
  - FATIGUE [None]
  - NAUSEA [None]
  - DIZZINESS [None]
  - ANORECTAL DISCOMFORT [None]
  - DRUG DOSE OMISSION [None]
  - INFLUENZA LIKE ILLNESS [None]
  - FEELING ABNORMAL [None]
  - FEELING COLD [None]
  - VOMITING [None]
  - DYSPNOEA [None]
